FAERS Safety Report 4558297-3 (Version None)
Quarter: 2005Q1

REPORT INFORMATION
  Report Type: 
  Country: None (occurrence: None)
  Receive Date: 20050103
  Receipt Date: 20041101
  Transmission Date: 20050727
  Serious: Yes (Other)
  Sender: FDA-Public Use
  Company Number: 2004UW22501

PATIENT
  Age: 68 Year
  Sex: Female
  Weight: 90.264 kg

DRUGS (3)
  1. CRESTOR [Suspect]
     Indication: HYPERCHOLESTEROLAEMIA
     Dosage: 20 MG QD PO
     Route: 048
     Dates: start: 20031201
  2. RIFAMPIN [Concomitant]
  3. SULFAM [Concomitant]

REACTIONS (1)
  - BLOOD CREATININE INCREASED [None]
